FAERS Safety Report 24932130 (Version 1)
Quarter: 2025Q1

REPORT INFORMATION
  Report Type: Report from Study
  Country: US (occurrence: US)
  Receive Date: 20250205
  Receipt Date: 20250205
  Transmission Date: 20250409
  Serious: No
  Sender: EXELIXIS
  Company Number: US-EXELIXIS-CABO-24079748

PATIENT
  Sex: Male
  Weight: 81.084 kg

DRUGS (2)
  1. CABOMETYX [Suspect]
     Active Substance: CABOZANTINIB S-MALATE
     Indication: Renal cancer
     Dosage: 60 MG, QD (THREE 20 MG TABLETS)
     Route: 048
     Dates: start: 20240620
  2. WELIREG [Suspect]
     Active Substance: BELZUTIFAN
     Indication: Renal cancer
     Dosage: 120 MG, QD (THREE 40 MG TABLETS)
     Dates: start: 20240620

REACTIONS (1)
  - Peripheral swelling [Unknown]
